FAERS Safety Report 14289684 (Version 1)
Quarter: 2017Q4

REPORT INFORMATION
  Report Type: Spontaneous
  Country: US (occurrence: US)
  Receive Date: 20171214
  Receipt Date: 20171214
  Transmission Date: 20180321
  Serious: No
  Sender: FDA-Public Use
  Company Number: US-ENDO PHARMACEUTICALS INC-2017-001576

PATIENT
  Sex: Male
  Weight: 99.77 kg

DRUGS (1)
  1. TESTIM [Suspect]
     Active Substance: TESTOSTERONE
     Indication: BLOOD TESTOSTERONE DECREASED
     Dosage: APPLIED ON SHOULDERS AND UPPER ARMS; ONE TUBE ON LEFT AND ONE TUBE ON THE RIGHT ONCE A DAY
     Route: 062
     Dates: start: 201609

REACTIONS (3)
  - Blood testosterone decreased [Not Recovered/Not Resolved]
  - Product quality issue [Unknown]
  - Wrong technique in product usage process [Unknown]
